FAERS Safety Report 25244238 (Version 1)
Quarter: 2025Q2

REPORT INFORMATION
  Report Type: Spontaneous
  Country: US (occurrence: US)
  Receive Date: 20250428
  Receipt Date: 20250428
  Transmission Date: 20250716
  Serious: No
  Sender: ROCHE
  Company Number: US-ROCHE-10000263684

PATIENT
  Age: 61 Year
  Sex: Female

DRUGS (5)
  1. ADO-TRASTUZUMAB EMTANSINE [Suspect]
     Active Substance: ADO-TRASTUZUMAB EMTANSINE
     Indication: Invasive ductal breast carcinoma
     Route: 065
  2. TRASTUZUMAB [Concomitant]
     Active Substance: TRASTUZUMAB
     Dosage: FOR 6 CYCLES
  3. PERTUZUMAB [Concomitant]
     Active Substance: PERTUZUMAB
     Dosage: FOR 6 CYCLES
  4. DOCETAXEL [Concomitant]
     Active Substance: DOCETAXEL
     Dosage: FOR 6 CYCLES
  5. CARBOPLATIN [Concomitant]
     Active Substance: CARBOPLATIN
     Dosage: FOR 6 CYCLES

REACTIONS (1)
  - Nodular regenerative hyperplasia [Unknown]
